FAERS Safety Report 22158048 (Version 1)
Quarter: 2023Q1

REPORT INFORMATION
  Report Type: Spontaneous
  Country: US (occurrence: US)
  Receive Date: 20230330
  Receipt Date: 20230330
  Transmission Date: 20230418
  Serious: No
  Sender: FDA-Public Use
  Company Number: US-ALKERMES INC.-ALK-2023-001288

PATIENT
  Age: 35 Year
  Sex: Female
  Weight: 102.04 kg

DRUGS (3)
  1. ARISTADA [Suspect]
     Active Substance: ARIPIPRAZOLE LAUROXIL
     Indication: Bipolar disorder
     Dosage: 882 MILLIGRAM
     Route: 030
  2. UNSPECIFIED INGREDIENT [Concomitant]
     Active Substance: UNSPECIFIED INGREDIENT
     Indication: Sleep disorder
     Dosage: UNK
     Route: 065
  3. MIRTAZAPINE [Concomitant]
     Active Substance: MIRTAZAPINE
     Indication: Sleep disorder
     Dosage: UNK
     Route: 065

REACTIONS (3)
  - Off label use [Not Recovered/Not Resolved]
  - Syringe issue [Recovered/Resolved]
  - Needle issue [Recovered/Resolved]

NARRATIVE: CASE EVENT DATE: 20230324
